FAERS Safety Report 6831213-7 (Version None)
Quarter: 2010Q3

REPORT INFORMATION
  Report Type: 
  Country: None (occurrence: None)
  Receive Date: 20100709
  Receipt Date: 20100709
  Transmission Date: 20110219
  Serious: No
  Sender: FDA-Public Use
  Company Number: None

PATIENT
  Age: 58 Year
  Sex: Male
  Weight: 83.6 kg

DRUGS (1)
  1. ZOLPIDEM [Suspect]
     Indication: INSOMNIA
     Dosage: 10MG HS BY MOUTH
     Route: 048
     Dates: start: 20070501, end: 20100501

REACTIONS (2)
  - GLOSSODYNIA [None]
  - HYPOAESTHESIA ORAL [None]
